FAERS Safety Report 10264164 (Version 1)
Quarter: 2014Q2

REPORT INFORMATION
  Report Type: Spontaneous
  Country: IT (occurrence: None)
  Receive Date: 20140624
  Receipt Date: 20140624
  Transmission Date: 20141212
  Serious: Yes (Hospitalization, Other)
  Sender: FDA-Public Use
  Company Number: AUR-APL-2014-06667

PATIENT
  Age: 19 Year
  Sex: Male

DRUGS (5)
  1. OLANZAPINE (OLANZAPINE) [Suspect]
     Indication: PRODUCT USED FOR UNKNOWN INDICATION
     Dosage: 130 MG, SINGLE ORAL
     Route: 048
     Dates: start: 20140601, end: 20140601
  2. LYRICA (PREGABALIN) [Suspect]
     Indication: PRODUCT USED FOR UNKNOWN INDICATION
     Dosage: 5 DF, SINGLE, ORAL
     Route: 048
     Dates: start: 20140601, end: 20140601
  3. SERTRALINE HYDROCHLORIDE (SERTRALINE HYDROCHLORIDE) [Concomitant]
  4. TRUVADA (EMTRICITABINE, TENOFOVIR DISOPROXIL FUMARATE) [Concomitant]
  5. ISOTREX (ISOTRETINOIN) [Concomitant]

REACTIONS (6)
  - Suicide attempt [None]
  - Drug abuse [None]
  - Agitation [None]
  - Bradykinesia [None]
  - Hypotension [None]
  - Heart rate increased [None]
